FAERS Safety Report 9517868 (Version 1)
Quarter: 2013Q3

REPORT INFORMATION
  Report Type: Spontaneous
  Country: US (occurrence: None)
  Receive Date: 20130910
  Receipt Date: 20130910
  Transmission Date: 20140515
  Serious: Yes (Other)
  Sender: FDA-Public Use
  Company Number: None

PATIENT
  Age: 54 Year
  Sex: Male

DRUGS (18)
  1. METOPROLOL [Suspect]
     Indication: BLOOD PRESSURE
     Dosage: PILL FORM
  2. ATORVASTATIN 40MG WATSON [Suspect]
     Indication: BLOOD CHOLESTEROL
  3. PRESTIQ [Suspect]
  4. NIFEDIPINE 50MG [Concomitant]
  5. GABAPANTIN 600 MG [Concomitant]
  6. LISINOPRIL 40MG [Concomitant]
  7. ZETIA 10MG [Concomitant]
  8. RANITIDINE 150MG [Concomitant]
  9. GEMFIBROZIL 600MG [Concomitant]
  10. GLIMEPIRIDE 4MG [Concomitant]
  11. CALCIUM MAGNESIUM [Concomitant]
  12. E [Concomitant]
  13. IRON SUPPLEMENTS [Concomitant]
  14. CENTRUM [Concomitant]
  15. B COMPLEX [Concomitant]
  16. FISH OIL [Concomitant]
  17. VITAMIN C [Concomitant]
  18. VITAMIN D [Concomitant]

REACTIONS (2)
  - Acne [None]
  - Pain [None]
